FAERS Safety Report 9596854 (Version 1)
Quarter: 2013Q4

REPORT INFORMATION
  Report Type: Spontaneous
  Country: ZA (occurrence: ZA)
  Receive Date: 20131004
  Receipt Date: 20131004
  Transmission Date: 20140711
  Serious: Yes (Death)
  Sender: FDA-Public Use
  Company Number: ZA-ASTRAZENECA-2013SE73499

PATIENT
  Age: 66 Year
  Sex: Male

DRUGS (7)
  1. VIMOVO [Suspect]
     Indication: RHEUMATOID ARTHRITIS
     Dosage: 500 MG/20 MG TWO TIMES A DAY
     Route: 048
     Dates: start: 20130814
  2. VERAHEXAL SR [Concomitant]
     Indication: HYPERTENSION
     Route: 048
     Dates: start: 201202
  3. CRESTOR [Concomitant]
     Indication: BLOOD CHOLESTEROL INCREASED
     Route: 048
     Dates: start: 201202
  4. VECTORYL [Concomitant]
     Indication: HYPERTENSION
     Route: 048
     Dates: start: 201111
  5. SALAZOPYRIN [Concomitant]
     Route: 048
     Dates: start: 20130814
  6. TRAMAHEXAL SR [Concomitant]
     Route: 048
     Dates: start: 20130814
  7. PREDNISONE [Concomitant]
     Route: 048
     Dates: start: 20130814

REACTIONS (1)
  - Myocardial infarction [Fatal]
